FAERS Safety Report 7558566-9 (Version None)
Quarter: 2011Q2

REPORT INFORMATION
  Report Type: 
  Country: None (occurrence: None)
  Receive Date: 20110621
  Receipt Date: 20110613
  Transmission Date: 20111010
  Serious: Yes (Hospitalization)
  Sender: FDA-Public Use
  Company Number: US-BIOGENIDEC-2011BI012375

PATIENT
  Age: 56 Year
  Sex: Female

DRUGS (8)
  1. PRAMIPEXOLE DIHYDROCHLORIDE [Concomitant]
     Indication: MUSCLE SPASMS
  2. PROVIGIL [Concomitant]
     Indication: FATIGUE
  3. BACLOFEN [Concomitant]
     Indication: TREMOR
  4. KLONOPIN [Concomitant]
     Indication: MUSCLE SPASMS
  5. KLONOPIN [Concomitant]
     Indication: TREMOR
  6. BACLOFEN [Concomitant]
     Indication: MUSCLE SPASMS
  7. PRAMIPEXOLE DIHYDROCHLORIDE [Concomitant]
     Indication: TREMOR
  8. TYSABRI [Suspect]
     Indication: MULTIPLE SCLEROSIS
     Route: 042
     Dates: start: 20110113

REACTIONS (12)
  - PAIN IN EXTREMITY [None]
  - SPEECH DISORDER [None]
  - MEMORY IMPAIRMENT [None]
  - POOR VENOUS ACCESS [None]
  - SYNCOPE [None]
  - CEREBROVASCULAR ACCIDENT [None]
  - INSOMNIA [None]
  - COGNITIVE DISORDER [None]
  - MULTIPLE SCLEROSIS RELAPSE [None]
  - HEADACHE [None]
  - FATIGUE [None]
  - CONFUSIONAL STATE [None]
